FAERS Safety Report 10388591 (Version 4)
Quarter: 2015Q1

REPORT INFORMATION
  Report Type: Spontaneous
  Country: GR (occurrence: GR)
  Receive Date: 20140815
  Receipt Date: 20150107
  Transmission Date: 20150720
  Serious: Yes (Death)
  Sender: FDA-Public Use
  Company Number: GR-BAXTER-2014BAX046835

PATIENT
  Age: 34 Year
  Sex: Female
  Weight: 53 kg

DRUGS (23)
  1. UROMITEXAN 400 MG /4ML [Suspect]
     Active Substance: MESNA
     Dosage: BEFORE ENDOXAN ADMINISTRATION
     Route: 065
  2. UROMITEXAN 400 MG /4ML [Suspect]
     Active Substance: MESNA
     Dosage: 4 HOURS AFTER ENDOXAN ADMINISTRATION
     Route: 065
  3. UROMITEXAN 400 MG /4ML [Suspect]
     Active Substance: MESNA
     Dosage: 4 HOURS AFTER ENDOXAN ADMINISTRATION
     Route: 065
     Dates: start: 20140702
  4. ADRIBLASTINA [Suspect]
     Active Substance: DOXORUBICIN HYDROCHLORIDE
     Route: 042
     Dates: start: 20140704
  5. ONDANSETRON [Suspect]
     Active Substance: ONDANSETRON
     Indication: PROPHYLAXIS OF NAUSEA AND VOMITING
     Route: 065
  6. ZYLORIC [Concomitant]
     Active Substance: ALLOPURINOL
     Indication: PRODUCT USED FOR UNKNOWN INDICATION
     Dosage: CONTINUOUSLY
     Route: 065
     Dates: start: 20140702
  7. ETOPOSIDE 100 MG/5ML [Suspect]
     Active Substance: ETOPOSIDE
     Indication: HODGKIN^S DISEASE
     Dosage: DAY 1-3
     Route: 042
     Dates: start: 20140702
  8. ETOPOSIDE 100 MG/5ML [Suspect]
     Active Substance: ETOPOSIDE
     Route: 042
     Dates: start: 20140704
  9. ZANTAC [Concomitant]
     Active Substance: RANITIDINE HYDROCHLORIDE
     Indication: PRODUCT USED FOR UNKNOWN INDICATION
     Dosage: FOR THE DAYS CORTISONE IS ADMINISTERED
     Route: 065
     Dates: start: 20140702
  10. ADRIBLASTINA [Suspect]
     Active Substance: DOXORUBICIN HYDROCHLORIDE
     Route: 042
     Dates: start: 20140703
  11. ENDOXAN 1000 MG - POWDER FOR SOLUTION FOR INJECTION [Suspect]
     Active Substance: CYCLOPHOSPHAMIDE
     Route: 042
     Dates: start: 20140703
  12. ENDOXAN 1000 MG - POWDER FOR SOLUTION FOR INJECTION [Suspect]
     Active Substance: CYCLOPHOSPHAMIDE
     Route: 042
     Dates: start: 20140704
  13. NATULAN [Suspect]
     Active Substance: PROCARBAZINE HYDROCHLORIDE
     Dosage: 250 MG/DAY FOR DAYS 1 TO 7
     Route: 048
  14. PREZOLON [Suspect]
     Active Substance: PREDNISOLONE
     Indication: HODGKIN^S DISEASE
     Dosage: 20MG 3 TIMES A DAY FOR DAYS1-14
     Route: 048
  15. EMEND [Suspect]
     Active Substance: APREPITANT
     Indication: PROPHYLAXIS OF NAUSEA AND VOMITING
     Dosage: 125-80-80 THE 3 FIRST DAYS OF EACH CYCLE
     Route: 048
     Dates: start: 20140702
  16. UROMITEXAN 400 MG /4ML [Suspect]
     Active Substance: MESNA
     Indication: PRODUCT USED FOR UNKNOWN INDICATION
     Dosage: BEFORE ENDOXAN ADMINISTRATION
     Route: 065
     Dates: start: 20140702
  17. ETOPOSIDE 100 MG/5ML [Suspect]
     Active Substance: ETOPOSIDE
     Route: 042
     Dates: start: 20140703
  18. NATULAN [Suspect]
     Active Substance: PROCARBAZINE HYDROCHLORIDE
     Indication: HODGKIN^S DISEASE
     Dosage: 50 MG/DAY FOR DAYS 1 TO 7
     Route: 048
     Dates: start: 20140702
  19. ZOFRON [Suspect]
     Active Substance: ONDANSETRON
     Indication: PROPHYLAXIS OF NAUSEA AND VOMITING
     Dosage: UP TO 2 TABLETS A DAY WHEN HAVING NAUSEA
     Route: 048
  20. ENDOXAN 1000 MG - POWDER FOR SOLUTION FOR INJECTION [Suspect]
     Active Substance: CYCLOPHOSPHAMIDE
     Indication: HODGKIN^S DISEASE
     Dosage: DAY 1
     Route: 042
     Dates: start: 20140702
  21. ADRIBLASTINA [Suspect]
     Active Substance: DOXORUBICIN HYDROCHLORIDE
     Indication: HODGKIN^S DISEASE
     Dosage: DAY 1
     Route: 042
     Dates: start: 20140702
  22. TEVAGRASTIM [Suspect]
     Active Substance: FILGRASTIM
     Indication: WHITE BLOOD CELL COUNT DECREASED
     Route: 065
     Dates: start: 20140710, end: 20140710
  23. TEVAGRASTIM [Suspect]
     Active Substance: FILGRASTIM
     Route: 065
     Dates: start: 20140712, end: 20140712

REACTIONS (5)
  - Aspiration [Fatal]
  - Vomiting [Unknown]
  - Diarrhoea [Unknown]
  - Neutropenia [Unknown]
  - Myocardial ischaemia [Fatal]

NARRATIVE: CASE EVENT DATE: 20140709
